FAERS Safety Report 7911110-6 (Version None)
Quarter: 2011Q4

REPORT INFORMATION
  Report Type: 
  Country: None (occurrence: None)
  Receive Date: 20111109
  Receipt Date: 20111026
  Transmission Date: 20120403
  Serious: Yes (Hospitalization)
  Sender: FDA-Public Use
  Company Number: 1000025246

PATIENT
  Age: 72 Year
  Sex: Female

DRUGS (11)
  1. WARAN (WARFARIN SODIUM) (TABLETS) (WARFARIN SODIUM) [Concomitant]
  2. MADOPARK (MADOPAR) (TABLETS) (MADOPAR) [Concomitant]
  3. RASAGILINE MESYLATE [Suspect]
     Indication: PARKINSON'S DISEASE
     Dosage: 1 MG (1 MG,1 IN 1 D),ORAL
     Route: 048
     Dates: start: 20110702, end: 20110909
  4. STALEVO (STALEVO) (TABLETS ) (STALEVO) [Concomitant]
  5. OMEPRAZOL ACTAVIS (OMEPRAZOLE) (TABLETS) (OMEPRAZOLE) [Concomitant]
  6. ZOLPIDEM (ZOLPIDEM) (TABLETS) (ZOLPIDEM) [Concomitant]
  7. ACETYLCYSTEIN ALTERNOVA (ACETYLCYSTEINE) (ACETYLCYSTEINE) [Concomitant]
  8. MOVICOL (POLYETHYLENE GLYCOL, POTASSIUM CHLORIDE, SODIUM BICARB.) (TAB [Concomitant]
  9. TRIOBE (HEPAGRISEVIT FORTE-N /01079901/) (TABLETS) (HEPAGRISEVIT FORTE [Concomitant]
  10. ESCITALOPRAM [Suspect]
     Dosage: 10 MG (10 MG,1 IN 1 D)
     Dates: start: 20110421, end: 20110904
  11. STESOLD (DIAZEPAM) (TABLETS) (DIAZEPAM) [Concomitant]

REACTIONS (3)
  - INFECTION [None]
  - DEPRESSED LEVEL OF CONSCIOUSNESS [None]
  - APHAGIA [None]
